FAERS Safety Report 9894367 (Version 2)
Quarter: 2014Q3

REPORT INFORMATION
  Report Type: Spontaneous
  Country: US (occurrence: US)
  Receive Date: 20140213
  Receipt Date: 20140812
  Transmission Date: 20150326
  Serious: Yes (Hospitalization, Other)
  Sender: FDA-Public Use
  Company Number: US-009507513-1402USA005773

PATIENT
  Sex: Female
  Weight: 115 kg

DRUGS (1)
  1. NUVARING [Suspect]
     Active Substance: ETHINYL ESTRADIOL\ETONOGESTREL
     Indication: MENSTRUAL DISORDER
     Route: 067

REACTIONS (3)
  - Depression [Unknown]
  - Pulmonary embolism [Unknown]
  - Constipation [Unknown]

NARRATIVE: CASE EVENT DATE: 20130408
